FAERS Safety Report 4383201-0 (Version None)
Quarter: 2004Q2

REPORT INFORMATION
  Report Type: 
  Country: None (occurrence: None)
  Receive Date: 20040623
  Receipt Date: 20040614
  Transmission Date: 20050107
  Serious: Yes (Other)
  Sender: FDA-Public Use
  Company Number: PHBS2004GB07764

PATIENT
  Age: 57 Year
  Sex: Female

DRUGS (6)
  1. OESTRADIOL [Suspect]
     Indication: FLUSHING
     Route: 061
     Dates: start: 20040407, end: 20040517
  2. IRBESARTAN [Concomitant]
     Indication: BLOOD PRESSURE INCREASED
     Dosage: 300 MG/DAY
  3. ATENOLOL [Concomitant]
     Indication: BLOOD PRESSURE INCREASED
     Dosage: 50 MG/DAY
  4. BENDROFLUAZIDE [Concomitant]
     Indication: BLOOD PRESSURE INCREASED
     Dosage: 2.5 MG/DAY
  5. PRAVASTATIN [Concomitant]
     Indication: BLOOD CHOLESTEROL INCREASED
     Dosage: 40 MG/DAY
  6. FLUOXETINE [Concomitant]
     Indication: DEPRESSION
     Dosage: 20 MG/DAY

REACTIONS (1)
  - DERMATITIS EXFOLIATIVE [None]
